FAERS Safety Report 8633702 (Version 5)
Quarter: 2013Q1

REPORT INFORMATION
  Report Type: Spontaneous
  Country: US (occurrence: US)
  Receive Date: 20120625
  Receipt Date: 20130116
  Transmission Date: 20140127
  Serious: Yes (Other)
  Sender: FDA-Public Use
  Company Number: US-PFIZER INC-2012149261

PATIENT
  Age: 59 Year
  Sex: Female
  Weight: 56.69 kg

DRUGS (6)
  1. VITAMIN B12 [Concomitant]
     Dosage: 2000 MG, UNK
     Dates: start: 2012
  2. VITAMIN B12 [Concomitant]
     Dosage: 1000 MG, UNK
     Route: 048
     Dates: start: 2012
  3. LIPITOR [Suspect]
     Indication: BLOOD CHOLESTEROL INCREASED
     Dosage: 20 MG, DAILY
     Dates: start: 2006
  4. CELEBREX [Suspect]
     Indication: OSTEOPOROSIS
     Dosage: 200 MG, 2X/DAY
     Dates: start: 2006
  5. PROTONIX [Suspect]
     Dosage: UNK
  6. LYRICA [Suspect]
     Dosage: UNK

REACTIONS (3)
  - Pneumonia [Unknown]
  - Rib fracture [Unknown]
  - Surgery [Unknown]
